FAERS Safety Report 10909338 (Version 1)
Quarter: 2015Q1

REPORT INFORMATION
  Report Type: Spontaneous
  Country: US (occurrence: US)
  Receive Date: 20150312
  Receipt Date: 20150312
  Transmission Date: 20150721
  Serious: No
  Sender: FDA-Public Use
  Company Number: US-SA-2014SA040723

PATIENT
  Age: 86 Year
  Sex: Female

DRUGS (1)
  1. NASACORT ALLERGY 24HR [Suspect]
     Active Substance: TRIAMCINOLONE ACETONIDE
     Indication: SINUS HEADACHE
     Dosage: SPRAY FORM
     Route: 065
     Dates: start: 20140327

REACTIONS (3)
  - Headache [Unknown]
  - Dizziness [Unknown]
  - Extra dose administered [Unknown]
